FAERS Safety Report 5819487-2 (Version None)
Quarter: 2008Q3

REPORT INFORMATION
  Report Type: 
  Country: None (occurrence: None)
  Receive Date: 20080723
  Receipt Date: 20080715
  Transmission Date: 20090109
  Serious: Yes (Hospitalization, Disabling)
  Sender: FDA-Public Use
  Company Number: MX-ASTRAZENECA-2008UW03794

PATIENT
  Age: 52 Year
  Sex: Male
  Weight: 84 kg

DRUGS (1)
  1. CRESTOR [Suspect]
     Indication: HYPERTRIGLYCERIDAEMIA
     Route: 048
     Dates: start: 20070601, end: 20070701

REACTIONS (1)
  - TENDON RUPTURE [None]
